FAERS Safety Report 5449788-1 (Version None)
Quarter: 2007Q3

REPORT INFORMATION
  Report Type: 
  Country: None (occurrence: None)
  Receive Date: 20070910
  Receipt Date: 20070827
  Transmission Date: 20080115
  Serious: Yes (Other)
  Sender: FDA-Public Use
  Company Number: S07-FRA-03727-01

PATIENT
  Age: 86 Year
  Sex: Female

DRUGS (2)
  1. EBIXA(MEMANTINE HYDROCHLORIDE) [Suspect]
     Dosage: 20 MG  QD PO
     Route: 048
     Dates: start: 20070801, end: 20070827
  2. DEPAKENE [Concomitant]

REACTIONS (4)
  - CONDITION AGGRAVATED [None]
  - DYSKINESIA [None]
  - DYSPHAGIA [None]
  - HYPERTONIA [None]
